FAERS Safety Report 9290050 (Version 1)
Quarter: 2012Q4

REPORT INFORMATION
  Report Type: Spontaneous
  Country: US (occurrence: None)
  Receive Date: 20121003
  Receipt Date: 20121003
  Transmission Date: 20130627
  Serious: Yes (Hospitalization)
  Sender: FDA-Public Use
  Company Number: VAL_00876_2012

PATIENT
  Sex: Female

DRUGS (12)
  1. METOPROLOL [Suspect]
     Indication: HYPERTENSION
     Route: 048
  2. METOPROLOL [Suspect]
     Indication: HYPERTENSION
  3. METOPROLOL [Suspect]
     Indication: HYPERTENSION
  4. NEXIUM [Concomitant]
  5. ZOCOR [Concomitant]
  6. COZAAR [Concomitant]
  7. POTASSIUM [Concomitant]
  8. FUROSE MIDE [Concomitant]
  9. CALCIUM 600 WITH VITAMIN D [Concomitant]
  10. VITAMIN D3 [Concomitant]
  11. MULTI-VIT [Concomitant]
  12. BABY ASPIRIN [Concomitant]

REACTIONS (3)
  - Blood glucose decreased [None]
  - Headache [None]
  - Product substitution issue [None]
